FAERS Safety Report 14265327 (Version 5)
Quarter: 2018Q2

REPORT INFORMATION
  Report Type: Report from Study
  Country: AU (occurrence: AU)
  Receive Date: 20171208
  Receipt Date: 20180621
  Transmission Date: 20180711
  Serious: Yes (Other)
  Sender: FDA-Public Use
  Company Number: PHHY2017AU180438

PATIENT
  Age: 28 Year
  Sex: Female
  Weight: 115 kg

DRUGS (8)
  1. PROBIOTIC [Concomitant]
     Active Substance: PROBIOTICS NOS
     Indication: PRODUCT USED FOR UNKNOWN INDICATION
     Dosage: UNK
     Route: 065
  2. GILENYA [Suspect]
     Active Substance: FINGOLIMOD HYDROCHLORIDE
     Indication: RELAPSING-REMITTING MULTIPLE SCLEROSIS
     Dosage: UNK
     Route: 048
     Dates: start: 201703
  3. ENDEP [Concomitant]
     Active Substance: AMITRIPTYLINE HYDROCHLORIDE
     Indication: BILIARY COLIC
  4. ENDEP [Concomitant]
     Active Substance: AMITRIPTYLINE HYDROCHLORIDE
     Indication: DEPRESSION
     Dosage: UNK
     Route: 065
  5. DIABEX [Concomitant]
     Active Substance: METFORMIN HYDROCHLORIDE
     Indication: POLYCYSTIC OVARIES
     Dosage: UNK
     Route: 065
  6. VITAMIN D [Concomitant]
     Active Substance: CHOLECALCIFEROL
     Indication: PRODUCT USED FOR UNKNOWN INDICATION
     Dosage: UNK
     Route: 065
  7. ORAL CONTRACEPTIVE NOS [Concomitant]
     Active Substance: UNSPECIFIED INGREDIENT
     Indication: POLYCYSTIC OVARIES
     Dosage: UNK
     Route: 048
  8. MULTI VITAMIN [Concomitant]
     Active Substance: VITAMINS
     Indication: PRODUCT USED FOR UNKNOWN INDICATION
     Dosage: UNK
     Route: 065

REACTIONS (25)
  - Dysphagia [Not Recovered/Not Resolved]
  - Stress [Not Recovered/Not Resolved]
  - Back pain [Not Recovered/Not Resolved]
  - Hypoaesthesia [Not Recovered/Not Resolved]
  - Decreased appetite [Not Recovered/Not Resolved]
  - Body mass index increased [Not Recovered/Not Resolved]
  - Sensory loss [Not Recovered/Not Resolved]
  - Gait disturbance [Not Recovered/Not Resolved]
  - Pneumonitis [Not Recovered/Not Resolved]
  - Viral infection [Not Recovered/Not Resolved]
  - Diarrhoea [Not Recovered/Not Resolved]
  - Vitamin D decreased [Not Recovered/Not Resolved]
  - Migraine [Recovered/Resolved]
  - Dyspnoea [Not Recovered/Not Resolved]
  - Irritable bowel syndrome [Not Recovered/Not Resolved]
  - Central nervous system lesion [Not Recovered/Not Resolved]
  - Muscle twitching [Not Recovered/Not Resolved]
  - Initial insomnia [Not Recovered/Not Resolved]
  - Paraesthesia [Not Recovered/Not Resolved]
  - Muscle spasms [Not Recovered/Not Resolved]
  - Decreased immune responsiveness [Not Recovered/Not Resolved]
  - Feeling hot [Not Recovered/Not Resolved]
  - Poor quality sleep [Not Recovered/Not Resolved]
  - Fall [Not Recovered/Not Resolved]
  - Anxiety [Not Recovered/Not Resolved]

NARRATIVE: CASE EVENT DATE: 201707
